FAERS Safety Report 6554012-2 (Version None)
Quarter: 2010Q1

REPORT INFORMATION
  Report Type: 
  Country: None (occurrence: None)
  Receive Date: 20100125
  Receipt Date: 20100125
  Transmission Date: 20100710
  Serious: No
  Sender: FDA-Public Use
  Company Number: None

PATIENT
  Sex: Male
  Weight: 118.8424 kg

DRUGS (1)
  1. TOPIRAMATE [Suspect]

REACTIONS (2)
  - DRUG INEFFECTIVE [None]
  - NO THERAPEUTIC RESPONSE [None]
